FAERS Safety Report 7632198-6 (Version None)
Quarter: 2011Q3

REPORT INFORMATION
  Report Type: 
  Country: None (occurrence: None)
  Receive Date: 20110725
  Receipt Date: 20100716
  Transmission Date: 20111222
  Serious: No
  Sender: FDA-Public Use
  Company Number: US-BRISTOL-MYERS SQUIBB COMPANY-15141609

PATIENT
  Age: 56 Year
  Sex: Male

DRUGS (2)
  1. COUMADIN [Suspect]
     Indication: ATRIAL FIBRILLATION
     Route: 048
     Dates: start: 20100427
  2. WARFARIN SODIUM [Suspect]
     Dosage: 1 DF=7MG ON ALTERNATE DAYS
     Dates: start: 20100527

REACTIONS (1)
  - ERECTILE DYSFUNCTION [None]
